FAERS Safety Report 23588611 (Version 1)
Quarter: 2024Q1

REPORT INFORMATION
  Report Type: Report from Study
  Country: DE (occurrence: DE)
  Receive Date: 20240302
  Receipt Date: 20240302
  Transmission Date: 20240410
  Serious: Yes (Hospitalization)
  Sender: FDA-Public Use
  Company Number: DE-AMGEN-DEUNI2023204321

PATIENT
  Age: 56 Year
  Sex: Female
  Weight: 70 kg

DRUGS (7)
  1. TRASTUZUMAB [Suspect]
     Active Substance: TRASTUZUMAB
     Indication: Breast cancer
     Dosage: 567 MILLIGRAM/ DATE OF LAST APPLICATION PRIOR EVENT 04/AUG/2023 LAST DOSE PRIOR EVENT 567 MG
     Route: 065
     Dates: start: 20230804
  2. TRASTUZUMAB [Suspect]
     Active Substance: TRASTUZUMAB
     Dosage: 420 MILLIGRAM
     Route: 065
     Dates: start: 20230823
  3. PERJETA [Suspect]
     Active Substance: PERTUZUMAB
     Indication: Breast cancer
     Dosage: 840 MILLIGRAM/ DATE OF LAST APPLICATION PRIOR EVENT 04/AUG/2023LAST DOSE PRIOR EVENT 840 MG
     Route: 065
     Dates: start: 20230804
  4. PERJETA [Suspect]
     Active Substance: PERTUZUMAB
     Dosage: 420 MILLIGRAM
     Route: 065
     Dates: start: 20230823
  5. PACLITAXEL [Suspect]
     Active Substance: PACLITAXEL
     Indication: Breast cancer
     Dosage: 138 MILLIGRAM/ DATE OF LAST APPLICATION PRIOR EVENT 04/AUG/2023LAST DOSE PRIOR EVENT 138MG, 143.2 MG
     Route: 065
     Dates: start: 20230804
  6. CARBOPLATIN [Suspect]
     Active Substance: CARBOPLATIN
     Indication: Breast cancer
     Dosage: 470 MILLIGRAM/ DATE OF LAST APPLICATION PRIOR EVENT 04/AUG/2023 LAST DOSE PRIOR EVENT 470 MG, 485 MG
     Route: 065
     Dates: start: 20230804
  7. LACTIC ACID, DL-\SODIUM LACTATE [Concomitant]
     Active Substance: LACTIC ACID, DL-\SODIUM LACTATE
     Dosage: UNK
     Route: 065
     Dates: start: 202309

REACTIONS (2)
  - Vertigo [Recovered/Resolved]
  - Diarrhoea [Not Recovered/Not Resolved]

NARRATIVE: CASE EVENT DATE: 20231108
